FAERS Safety Report 12284833 (Version 4)
Quarter: 2018Q1

REPORT INFORMATION
  Report Type: Spontaneous
  Country: US (occurrence: US)
  Receive Date: 20160420
  Receipt Date: 20180327
  Transmission Date: 20180508
  Serious: No
  Sender: FDA-Public Use
  Company Number: US-TEVA-647797USA

PATIENT
  Age: 52 Year
  Sex: Female

DRUGS (2)
  1. ZECUITY [Suspect]
     Active Substance: SUMATRIPTAN SUCCINATE
     Route: 062
     Dates: start: 20160329, end: 20160329
  2. ZECUITY [Suspect]
     Active Substance: SUMATRIPTAN SUCCINATE
     Route: 062
     Dates: start: 20160309, end: 20160309

REACTIONS (10)
  - Application site exfoliation [Not Recovered/Not Resolved]
  - Application site pruritus [Not Recovered/Not Resolved]
  - Device battery issue [Unknown]
  - Device issue [Unknown]
  - Application site swelling [Not Recovered/Not Resolved]
  - Application site exfoliation [Not Recovered/Not Resolved]
  - Application site rash [Unknown]
  - Application site erythema [Not Recovered/Not Resolved]
  - Application site reaction [Recovered/Resolved]
  - Skin burning sensation [Unknown]

NARRATIVE: CASE EVENT DATE: 20160309
